FAERS Safety Report 4367987-7 (Version None)
Quarter: 2004Q2

REPORT INFORMATION
  Report Type: 
  Country: None (occurrence: None)
  Receive Date: 20040527
  Receipt Date: 20040304
  Transmission Date: 20050107
  Serious: No
  Sender: FDA-Public Use
  Company Number: 205052

PATIENT
  Age: 59 Year
  Sex: Male

DRUGS (6)
  1. RAPTIVA [Suspect]
     Indication: PSORIASIS
     Dosage: 1 MG/KG, 1/WEEK, SUBCUTANEOUS
     Route: 058
     Dates: start: 20040201, end: 20040221
  2. LIPITOR [Concomitant]
  3. CARDURA [Concomitant]
  4. PROZAC [Concomitant]
  5. NORVASC [Concomitant]
  6. AMILORIDE (AMILORIDE HYDROCHLORIDE) [Concomitant]

REACTIONS (2)
  - ARTHRALGIA [None]
  - JOINT SWELLING [None]
